FAERS Safety Report 7027057-6 (Version None)
Quarter: 2010Q4

REPORT INFORMATION
  Report Type: 
  Country: None (occurrence: None)
  Receive Date: 20101004
  Receipt Date: 20100922
  Transmission Date: 20110411
  Serious: Yes (Other)
  Sender: FDA-Public Use
  Company Number: US-JNJFOC-20100807983

PATIENT
  Sex: Female
  Weight: 73.48 kg

DRUGS (2)
  1. REMICADE [Suspect]
     Indication: ANKYLOSING SPONDYLITIS
     Dosage: 1ST INFUSION
     Route: 042
  2. REMICADE [Suspect]
     Route: 042

REACTIONS (2)
  - AGEUSIA [None]
  - ORAL HERPES [None]
